FAERS Safety Report 9472793 (Version 2)
Quarter: 2013Q3

REPORT INFORMATION
  Report Type: Spontaneous
  Country: US (occurrence: US)
  Receive Date: 20130823
  Receipt Date: 20130823
  Transmission Date: 20140515
  Serious: No
  Sender: FDA-Public Use
  Company Number: US-PFIZER INC-2013242886

PATIENT
  Age: 58 Year
  Sex: Female
  Weight: 108.84 kg

DRUGS (1)
  1. PRISTIQ [Suspect]
     Dosage: 100 MG, 1X/DAY (IN THE MORNING)
     Route: 048
     Dates: start: 2011

REACTIONS (1)
  - Somnolence [Unknown]
